FAERS Safety Report 11744145 (Version 3)
Quarter: 2016Q1

REPORT INFORMATION
  Report Type: Report from Study
  Country: CA (occurrence: CA)
  Receive Date: 20151116
  Receipt Date: 20160122
  Transmission Date: 20160525
  Serious: No
  Sender: FDA-Public Use
  Company Number: CA-ALEXION PHARMACEUTICALS INC.-A201504531

PATIENT
  Sex: Female
  Weight: 9.4 kg

DRUGS (1)
  1. STRENSIQ [Suspect]
     Active Substance: ASFOTASE ALFA
     Indication: HYPOPHOSPHATASIA
     Dosage: 19 MG, TIW
     Route: 058
     Dates: start: 20140830

REACTIONS (6)
  - Nephrocalcinosis [Unknown]
  - Tooth development disorder [Not Recovered/Not Resolved]
  - Speech disorder [Unknown]
  - Muscular weakness [Unknown]
  - Fatigue [Not Recovered/Not Resolved]
  - Femur fracture [Unknown]
